FAERS Safety Report 7866999-6 (Version None)
Quarter: 2011Q4

REPORT INFORMATION
  Report Type: 
  Country: None (occurrence: None)
  Receive Date: 20111026
  Receipt Date: 20111025
  Transmission Date: 20120403
  Serious: Yes (Other)
  Sender: FDA-Public Use
  Company Number: SP05259

PATIENT
  Sex: Female

DRUGS (2)
  1. BISOPROLOL [Suspect]
     Indication: HYPERTONIA
  2. MOVIPREP [Suspect]
     Indication: BOWEL PREPARATION
     Dosage: ORAL
     Route: 048

REACTIONS (1)
  - BRADYCARDIA [None]
